FAERS Safety Report 7688977-2 (Version None)
Quarter: 2011Q3

REPORT INFORMATION
  Report Type: 
  Country: None (occurrence: None)
  Receive Date: 20110817
  Receipt Date: 20110812
  Transmission Date: 20111222
  Serious: Yes (Hospitalization)
  Sender: FDA-Public Use
  Company Number: PHHY2011MX72687

PATIENT
  Sex: Female

DRUGS (2)
  1. TEGRETOL [Suspect]
     Indication: EPILEPSY
     Dosage: 2 DF, DAILY (200  MG)
     Dates: start: 20100101
  2. CLONAZEPAM [Concomitant]
     Indication: EPILEPSY
     Dosage: 2 DF, DAILY
     Dates: start: 19940801

REACTIONS (2)
  - BREAST CANCER [None]
  - CONVULSION [None]
